FAERS Safety Report 8146483-5 (Version None)
Quarter: 2012Q1

REPORT INFORMATION
  Report Type: 
  Country: None (occurrence: None)
  Receive Date: 20120217
  Receipt Date: 20110727
  Transmission Date: 20120608
  Serious: No
  Sender: FDA-Public Use
  Company Number: US-ABBOTT-11P-163-0840224-00

PATIENT
  Sex: Female
  Weight: 88.53 kg

DRUGS (8)
  1. RANITIDINE [Concomitant]
     Indication: GASTROOESOPHAGEAL REFLUX DISEASE
     Dosage: 300 TWICE A DAY
  2. ASPIRIN [Concomitant]
     Indication: CARDIAC DISORDER
     Dosage: 1 A DAY
  3. ATENOLOL [Concomitant]
     Indication: HEART RATE INCREASED
     Dosage: 25 MG 1 TIME A DAY
  4. CALCIUM +D [Concomitant]
     Indication: VITAMIN SUPPLEMENTATION
  5. SIMCOR [Suspect]
     Indication: BLOOD CHOLESTEROL INCREASED
     Dosage: 500/40 MG ONCE DAILY
     Dates: start: 20110713
  6. ASPIRIN [Concomitant]
     Indication: PROPHYLAXIS
  7. CALCIUM +D [Concomitant]
     Indication: MINERAL SUPPLEMENTATION
  8. METFORMIN HCL [Concomitant]
     Indication: DIABETES MELLITUS
     Dosage: 500 TWICE A DAY

REACTIONS (4)
  - SKIN BURNING SENSATION [None]
  - FLUSHING [None]
  - GENERALISED ERYTHEMA [None]
  - LIP SWELLING [None]
